FAERS Safety Report 7645262-2 (Version None)
Quarter: 2011Q3

REPORT INFORMATION
  Report Type: 
  Country: None (occurrence: None)
  Receive Date: 20110729
  Receipt Date: 20110629
  Transmission Date: 20111222
  Serious: No
  Sender: FDA-Public Use
  Company Number: US-BAYER-2011-058745

PATIENT
  Sex: Male

DRUGS (2)
  1. VITAMIN D [Concomitant]
  2. ALEVE (CAPLET) [Suspect]
     Indication: ANALGESIC THERAPY
     Dosage: 1 DF, EVERY 8 HOURS
     Route: 048
     Dates: start: 20110615

REACTIONS (2)
  - NO ADVERSE EVENT [None]
  - PAIN [None]
